FAERS Safety Report 15218486 (Version 2)
Quarter: 2018Q4

REPORT INFORMATION
  Report Type: Spontaneous
  Country: US (occurrence: US)
  Receive Date: 20180730
  Receipt Date: 20181130
  Transmission Date: 20190204
  Serious: Yes (Hospitalization, Disabling, Other)
  Sender: FDA-Public Use
  Company Number: US-009507513-99010166

PATIENT
  Sex: Female
  Weight: 78.01 kg

DRUGS (5)
  1. FOSAMAX [Suspect]
     Active Substance: ALENDRONATE SODIUM
     Indication: OSTEOPOROSIS
     Dosage: 10 MG, UNKNOWN
     Route: 048
     Dates: start: 1996, end: 2016
  2. FOSAMAX [Suspect]
     Active Substance: ALENDRONATE SODIUM
     Indication: OSTEOPOROSIS
     Dosage: 5 MG, UNKNOWN
     Route: 048
     Dates: start: 1996, end: 2016
  3. ALENDRONATE SODIUM. [Suspect]
     Active Substance: ALENDRONATE SODIUM
     Indication: OSTEOPOROSIS
     Dosage: UNK, UNKNOWN
     Route: 048
     Dates: start: 1996, end: 2016
  4. FOSAMAX [Suspect]
     Active Substance: ALENDRONATE SODIUM
     Indication: OSTEOPOROSIS
     Dosage: 70 MILLIGRAM, UNKNOWN
     Route: 048
     Dates: start: 2017
  5. FOSAMAX PLUS D [Suspect]
     Active Substance: ALENDRONATE SODIUM\CHOLECALCIFEROL
     Indication: OSTEOPOROSIS
     Dosage: UNK
     Route: 048
     Dates: start: 1996, end: 2016

REACTIONS (20)
  - Femur fracture [Unknown]
  - Depression [Unknown]
  - Compression fracture [Unknown]
  - Blood cholesterol increased [Unknown]
  - Deep vein thrombosis [Unknown]
  - Cardiac failure congestive [Unknown]
  - Acetabulum fracture [Unknown]
  - Cervical vertebral fracture [Unknown]
  - Sleep disorder [Recovered/Resolved]
  - Fracture delayed union [Unknown]
  - Abdominal pain upper [Unknown]
  - Tooth abscess [Unknown]
  - Hypertension [Unknown]
  - Asthma [Unknown]
  - Myalgia [Unknown]
  - Device dislocation [Unknown]
  - Femur fracture [Recovering/Resolving]
  - Fall [Unknown]
  - Anxiety [Unknown]
  - Post-traumatic stress disorder [Unknown]

NARRATIVE: CASE EVENT DATE: 20160223
